FAERS Safety Report 6553340-4 (Version None)
Quarter: 2010Q1

REPORT INFORMATION
  Report Type: 
  Country: None (occurrence: None)
  Receive Date: 20100127
  Receipt Date: 20090713
  Transmission Date: 20100710
  Serious: No
  Sender: FDA-Public Use
  Company Number: A0796679A

PATIENT
  Age: 32 Year
  Sex: Female

DRUGS (9)
  1. IMITREX [Suspect]
     Indication: MIGRAINE
     Dates: start: 20080101
  2. IMITREX [Suspect]
  3. TREXIMET [Suspect]
     Indication: MIGRAINE
     Dosage: 1TAB AS REQUIRED
     Route: 048
  4. DOXYCYCLINE [Suspect]
  5. MAGNESIUM [Concomitant]
  6. CHONDROITIN [Concomitant]
  7. GREEN TEA CAPSULES [Concomitant]
  8. PRIMROSE [Concomitant]
  9. LOVAZA [Concomitant]

REACTIONS (5)
  - FEELING HOT [None]
  - HYPERTENSION [None]
  - HYPOAESTHESIA [None]
  - PARAESTHESIA [None]
  - TEMPERATURE INTOLERANCE [None]
